FAERS Safety Report 17482581 (Version 1)
Quarter: 2020Q1

REPORT INFORMATION
  Report Type: Spontaneous
  Country: US (occurrence: US)
  Receive Date: 20200302
  Receipt Date: 20200302
  Transmission Date: 20200409
  Serious: Yes (Other)
  Sender: FDA-Public Use
  Company Number: US-PFIZER INC-2016350519

PATIENT
  Age: 82 Year
  Sex: Female
  Weight: 94.8 kg

DRUGS (1)
  1. ARTHROTEC [Suspect]
     Active Substance: DICLOFENAC SODIUM\MISOPROSTOL
     Indication: ARTHRITIS
     Dosage: 75 MG, 2X/DAY
     Route: 048

REACTIONS (3)
  - Blood sodium decreased [Recovered/Resolved]
  - Confusional state [Unknown]
  - Intentional product misuse [Unknown]
